FAERS Safety Report 13323474 (Version 4)
Quarter: 2017Q3

REPORT INFORMATION
  Report Type: Report from Study
  Country: JP (occurrence: JP)
  Receive Date: 20170310
  Receipt Date: 20170727
  Transmission Date: 20171127
  Serious: Yes (Hospitalization, Other)
  Sender: FDA-Public Use
  Company Number: PHJP2017JP007493

PATIENT
  Age: 1 Year
  Sex: Female

DRUGS (20)
  1. CEFOTAXIME [Concomitant]
     Active Substance: CEFOTAXIME SODIUM
     Indication: PRODUCT USED FOR UNKNOWN INDICATION
     Dosage: 0.9 G, UNK
     Route: 065
     Dates: end: 20160914
  2. METOPROLOL TARTRATE. [Concomitant]
     Active Substance: METOPROLOL TARTRATE
     Indication: PRODUCT USED FOR UNKNOWN INDICATION
     Dosage: 0.15 IU, UNK
     Route: 065
     Dates: end: 20160915
  3. ILARIS [Suspect]
     Active Substance: CANAKINUMAB
     Indication: HYPER IGD SYNDROME
     Dosage: 13 MG, UNK
     Route: 058
     Dates: start: 20160909
  4. PREDONINE [Concomitant]
     Active Substance: PREDNISOLONE
     Dosage: 3 MG, UNK
     Route: 048
     Dates: start: 20160930, end: 20161010
  5. PREDONINE [Concomitant]
     Active Substance: PREDNISOLONE
     Dosage: 1.5 MG, UNK
     Route: 048
     Dates: start: 20161108, end: 20161112
  6. ALFAROL [Concomitant]
     Active Substance: ALFACALCIDOL
     Indication: MEVALONATE KINASE DEFICIENCY
     Dosage: 0.2 ML, UNK
     Route: 048
     Dates: start: 20160914, end: 20170103
  7. FAMOTIDINE. [Concomitant]
     Active Substance: FAMOTIDINE
     Indication: MEVALONATE KINASE DEFICIENCY
     Dosage: 5 MG, UNK
     Route: 065
     Dates: end: 20160914
  8. PREDONINE [Concomitant]
     Active Substance: PREDNISOLONE
     Dosage: 4 MG, UNK
     Route: 048
     Dates: start: 20160923, end: 20160929
  9. PREDONINE [Concomitant]
     Active Substance: PREDNISOLONE
     Dosage: 1 MG, UNK
     Route: 048
     Dates: start: 20161206, end: 20170103
  10. INCREMIN [Concomitant]
     Active Substance: FERRIC PYROPHOSPHATE
     Indication: PRODUCT USED FOR UNKNOWN INDICATION
     Dosage: 4 ML, UNK
     Route: 048
     Dates: start: 20160916, end: 20161205
  11. ILARIS [Suspect]
     Active Substance: CANAKINUMAB
     Dosage: 14 MG, UNK
     Route: 058
     Dates: start: 20161011
  12. PREDONINE [Concomitant]
     Active Substance: PREDNISOLONE
     Indication: MEVALONATE KINASE DEFICIENCY
     Dosage: UNK
     Route: 065
     Dates: start: 20161113, end: 20161116
  13. FULCALIQ [Concomitant]
     Active Substance: AMINO ACIDS\CARBOHYDRATES\ELECTROLYTES NOS\VITAMINS
     Indication: PRODUCT USED FOR UNKNOWN INDICATION
     Dosage: 250 ML, UNK
     Route: 065
     Dates: end: 20160915
  14. PREDONINE [Concomitant]
     Active Substance: PREDNISOLONE
     Indication: MEVALONATE KINASE DEFICIENCY
     Dosage: 6 MG, UNK
     Route: 065
     Dates: end: 20160915
  15. PREDONINE [Concomitant]
     Active Substance: PREDNISOLONE
     Dosage: 5 MG, UNK
     Route: 048
     Dates: start: 20160916, end: 20160922
  16. PREDONINE [Concomitant]
     Active Substance: PREDNISOLONE
     Dosage: 1.5 MG, UNK
     Route: 048
     Dates: start: 20161117, end: 20161205
  17. ILARIS [Suspect]
     Active Substance: CANAKINUMAB
     Dosage: 15 MG, UNK
     Route: 058
     Dates: start: 20161108
  18. ILARIS [Suspect]
     Active Substance: CANAKINUMAB
     Dosage: 15 MG, UNK
     Route: 058
     Dates: start: 20161206, end: 20170103
  19. PREDONINE [Concomitant]
     Active Substance: PREDNISOLONE
     Dosage: 2 MG, UNK
     Route: 048
     Dates: start: 20161011, end: 20161107
  20. GASTER [Concomitant]
     Active Substance: FAMOTIDINE
     Indication: MEVALONATE KINASE DEFICIENCY
     Dosage: 3 MG, UNK
     Route: 048
     Dates: start: 20160914, end: 20170103

REACTIONS (6)
  - Product use in unapproved indication [Unknown]
  - Gastroenteritis norovirus [Recovered/Resolved]
  - Upper respiratory tract infection [Recovered/Resolved]
  - Vomiting [Unknown]
  - Pyrexia [Recovered/Resolved]
  - Drug administered to patient of inappropriate age [Unknown]

NARRATIVE: CASE EVENT DATE: 20160926
